FAERS Safety Report 9513248 (Version 2)
Quarter: 2013Q3

REPORT INFORMATION
  Report Type: Spontaneous
  Country: JP (occurrence: JP)
  Receive Date: 20130910
  Receipt Date: 20130910
  Transmission Date: 20140515
  Serious: Yes (Other)
  Sender: FDA-Public Use
  Company Number: JP-ELI_LILLY_AND_COMPANY-JP201306009042

PATIENT
  Age: 62 Year
  Sex: Male
  Weight: 47.6 kg

DRUGS (7)
  1. ALIMTA [Suspect]
     Indication: LUNG ADENOCARCINOMA STAGE IV
     Dosage: 500 MG/M2, UNK
     Route: 042
     Dates: start: 20130411, end: 20130627
  2. AVASTIN [Suspect]
     Indication: LUNG ADENOCARCINOMA STAGE IV
     Dosage: 15 MG, UNK
     Route: 042
     Dates: start: 20130411, end: 20130627
  3. CARBOPLATIN [Concomitant]
     Dosage: UNK
     Route: 042
     Dates: start: 20130411, end: 20130627
  4. ALOXI [Concomitant]
     Indication: PROPHYLAXIS
     Dosage: 0.75 MG, UNK
     Route: 042
     Dates: start: 20130411, end: 20130627
  5. DEXART [Concomitant]
     Indication: PROPHYLAXIS
     Dosage: 9.9 MG, UNK
     Route: 042
     Dates: start: 20130411, end: 20130627
  6. PANVITAN [Concomitant]
     Indication: PROPHYLAXIS
     Dosage: 1 G, UNK
     Route: 048
     Dates: start: 20130405, end: 20130724
  7. FRESMIN S [Concomitant]
     Indication: PROPHYLAXIS
     Dosage: 1 MG, UNK
     Route: 042
     Dates: start: 20130325, end: 20130523

REACTIONS (1)
  - Lung infiltration [Recovering/Resolving]
